FAERS Safety Report 9297075 (Version 1)
Quarter: 2013Q2

REPORT INFORMATION
  Report Type: Spontaneous
  Country: KR (occurrence: KR)
  Receive Date: 20130519
  Receipt Date: 20130519
  Transmission Date: 20140414
  Serious: Yes (Hospitalization)
  Sender: FDA-Public Use
  Company Number: KR-MYLANLABS-2013S1010035

PATIENT
  Age: 55 Year
  Sex: Female

DRUGS (5)
  1. METFORMIN [Suspect]
     Indication: DIABETES MELLITUS
     Dosage: 1000 MG/DAY
     Route: 065
  2. AMLODIPINE [Concomitant]
     Dosage: 5 MG/DAY
     Route: 065
  3. OLMESARTAN MEDOXOMIL [Concomitant]
     Dosage: 20 MG/DAY
     Route: 065
  4. FERRIC HYDROXIDE POLYMALTOSE [Concomitant]
     Dosage: 357 MG/DAY
     Route: 065
  5. SITAGLIPTIN [Concomitant]
     Dosage: 50 MG/DAY
     Route: 065

REACTIONS (1)
  - Encephalopathy [Recovered/Resolved]
